FAERS Safety Report 5727667-X (Version None)
Quarter: 2008Q2

REPORT INFORMATION
  Report Type: 
  Country: None (occurrence: None)
  Receive Date: 20080505
  Receipt Date: 20080422
  Transmission Date: 20081010
  Serious: Yes (Hospitalization)
  Sender: FDA-Public Use
  Company Number: B0517918A

PATIENT
  Age: 54 Year
  Sex: Female

DRUGS (3)
  1. SERETIDE DISKUS [Suspect]
     Indication: DRUG USE FOR UNKNOWN INDICATION
     Dosage: 2PUFF TWICE PER DAY
     Route: 055
     Dates: start: 20080125, end: 20080208
  2. SOLACY [Suspect]
     Indication: DRUG USE FOR UNKNOWN INDICATION
     Dosage: 1CAP THREE TIMES PER DAY
     Route: 048
     Dates: start: 20080125, end: 20080208
  3. SPIRIVA [Concomitant]
     Dosage: 1PUFF PER DAY
     Route: 055
     Dates: start: 20071101, end: 20080208

REACTIONS (7)
  - ARTHRALGIA [None]
  - ASTHENIA [None]
  - OEDEMA PERIPHERAL [None]
  - PAIN [None]
  - PRURITUS [None]
  - PURPURA [None]
  - WEIGHT DECREASED [None]
